FAERS Safety Report 25085988 (Version 1)
Quarter: 2025Q1

REPORT INFORMATION
  Report Type: Spontaneous
  Country: IN (occurrence: IN)
  Receive Date: 20250317
  Receipt Date: 20250317
  Transmission Date: 20250408
  Serious: Yes (Other)
  Sender: NOVARTIS
  Company Number: IN-SANDOZ-SDZ2023IN068823

PATIENT
  Age: 26 Year
  Sex: Male

DRUGS (7)
  1. TACROLIMUS [Suspect]
     Active Substance: TACROLIMUS
     Indication: Renal transplant
     Route: 065
  2. TACROLIMUS [Suspect]
     Active Substance: TACROLIMUS
     Dosage: 5 MG, QD
     Route: 048
  3. TACROLIMUS [Suspect]
     Active Substance: TACROLIMUS
     Dosage: 4.5 MG, QD
     Route: 048
  4. TACROLIMUS [Suspect]
     Active Substance: TACROLIMUS
     Route: 048
  5. TACROLIMUS [Suspect]
     Active Substance: TACROLIMUS
     Route: 048
  6. MYFORTIC [Suspect]
     Active Substance: MYCOPHENOLATE SODIUM
     Indication: Renal transplant
     Dosage: 1080 MG, QD (360 MG, TID)
     Route: 048
  7. MYFORTIC [Suspect]
     Active Substance: MYCOPHENOLATE SODIUM
     Dosage: 1080 MG, QD (360 MG, TID)
     Route: 048

REACTIONS (13)
  - White blood cell disorder [Unknown]
  - Hypertension [Unknown]
  - Product prescribing error [Unknown]
  - Blood albumin abnormal [Unknown]
  - Blood creatine abnormal [Unknown]
  - Blood potassium abnormal [Unknown]
  - Blood thyroid stimulating hormone abnormal [Unknown]
  - Blood urea abnormal [Unknown]
  - Haemoglobin abnormal [Unknown]
  - Blood phosphorus abnormal [Unknown]
  - Blood sodium abnormal [Unknown]
  - Pain [Unknown]
  - Off label use [Unknown]

NARRATIVE: CASE EVENT DATE: 20250201
